FAERS Safety Report 15224855 (Version 1)
Quarter: 2018Q3

REPORT INFORMATION
  Report Type: Spontaneous
  Country: ES (occurrence: ES)
  Receive Date: 20180731
  Receipt Date: 20180731
  Transmission Date: 20181010
  Serious: Yes (Other)
  Sender: FDA-Public Use
  Company Number: ES-TAKEDA-2018TUS023465

PATIENT
  Age: 73 Year
  Sex: Female
  Weight: 75 kg

DRUGS (1)
  1. BRINTELLIX [Suspect]
     Active Substance: VORTIOXETINE HYDROBROMIDE
     Indication: PERSISTENT DEPRESSIVE DISORDER
     Dosage: 10 MG, QD
     Route: 048
     Dates: start: 20180424, end: 20180530

REACTIONS (4)
  - Tremor [Recovered/Resolved]
  - Irritability [Recovered/Resolved]
  - Pruritus [Recovered/Resolved]
  - Headache [Recovered/Resolved]

NARRATIVE: CASE EVENT DATE: 20180527
